FAERS Safety Report 10244343 (Version 2)
Quarter: 2015Q2

REPORT INFORMATION
  Report Type: Report from Study
  Country: JP (occurrence: JP)
  Receive Date: 20140618
  Receipt Date: 20150403
  Transmission Date: 20150821
  Serious: Yes (Hospitalization)
  Sender: FDA-Public Use
  Company Number: JP-009507513-1406JPN007839

PATIENT
  Sex: Male
  Weight: 2 kg

DRUGS (1)
  1. DIAZOXIDE CAPSULES 25 MG ^MSD^ [Suspect]
     Active Substance: DIAZOXIDE
     Indication: HYPOGLYCAEMIA
     Dosage: UNK, DAILY DOSAGE UNKNOWN
     Route: 048
     Dates: start: 20130711

REACTIONS (1)
  - Patent ductus arteriosus [Recovered/Resolved]
